FAERS Safety Report 20259526 (Version 1)
Quarter: 2021Q4

REPORT INFORMATION
  Report Type: Spontaneous
  Country: US (occurrence: US)
  Receive Date: 20211230
  Receipt Date: 20211230
  Transmission Date: 20220304
  Serious: No
  Sender: FDA-Public Use
  Company Number: US-BIOMARINAP-US-2021-140434

PATIENT
  Age: 5 Year
  Sex: Female

DRUGS (1)
  1. ALDURAZYME [Suspect]
     Active Substance: LARONIDASE
     Indication: Mucopolysaccharidosis I
     Dosage: 11.6 MILLIGRAM, QW
     Route: 042
     Dates: start: 20210909

REACTIONS (1)
  - Joint range of motion decreased [Unknown]

NARRATIVE: CASE EVENT DATE: 20210101
